FAERS Safety Report 7522924-9 (Version None)
Quarter: 2011Q2

REPORT INFORMATION
  Report Type: 
  Country: None (occurrence: None)
  Receive Date: 20110603
  Receipt Date: 20110523
  Transmission Date: 20111010
  Serious: Yes (Other)
  Sender: FDA-Public Use
  Company Number: PHHY2011US45571

PATIENT
  Sex: Female

DRUGS (8)
  1. HYDROCHLOROTHIAZIDE [Concomitant]
     Dosage: UNK UKN, UNK
  2. SYNTHROID [Concomitant]
     Dosage: UNK UKN, UNK
  3. NORVASC [Concomitant]
  4. MAXAIR [Concomitant]
     Dosage: UNK UKN, UNK
  5. XOPENEX [Concomitant]
     Dosage: UNK UKN, UNK
  6. GENTEAL [Suspect]
     Indication: DRY EYE
     Dosage: 1 DRP, TID
  7. FLOVENT [Concomitant]
     Dosage: UNK UKN, UNK
  8. SYSTANE (PROPYLENE GLYCOL/MACROGOL) [Concomitant]
     Dosage: UNK UKN, UNK

REACTIONS (2)
  - DIPLOPIA [None]
  - BLOOD PRESSURE INCREASED [None]
